FAERS Safety Report 7315139-0 (Version None)
Quarter: 2011Q1

REPORT INFORMATION
  Report Type: 
  Country: None (occurrence: None)
  Receive Date: 20110225
  Receipt Date: 20110218
  Transmission Date: 20110831
  Serious: Yes (Hospitalization, Other)
  Sender: FDA-Public Use
  Company Number: US-JNJFOC-20100900823

PATIENT
  Sex: Male
  Weight: 115.67 kg

DRUGS (6)
  1. LEVAQUIN [Suspect]
     Indication: PROSTATITIS
     Route: 048
  2. LEVAQUIN [Suspect]
     Indication: EPIDIDYMITIS
     Route: 048
  3. LEVAQUIN [Suspect]
     Indication: ORCHITIS
     Route: 048
  4. CIPRO [Suspect]
     Indication: SCROTAL PAIN
     Route: 048
  5. CIPRO [Suspect]
     Indication: TESTICULAR PAIN
     Route: 048
  6. CIPRO [Suspect]
     Indication: PROSTATITIS
     Route: 048

REACTIONS (2)
  - TENOSYNOVITIS [None]
  - TENDON RUPTURE [None]
